FAERS Safety Report 20035617 (Version 1)
Quarter: 2021Q4

REPORT INFORMATION
  Report Type: Report from Study
  Country: US (occurrence: US)
  Receive Date: 20211104
  Receipt Date: 20211104
  Transmission Date: 20220303
  Serious: No
  Sender: FDA-Public Use
  Company Number: US-BEH-2021137013

PATIENT
  Age: 57 Year
  Sex: Male
  Weight: 88.435 kg

DRUGS (4)
  1. HIZENTRA [Suspect]
     Active Substance: HUMAN IMMUNOGLOBULIN G
     Indication: Chronic inflammatory demyelinating polyradiculoneuropathy
     Dosage: 20 GRAM, QW
     Route: 058
     Dates: start: 20200401
  2. HIZENTRA [Suspect]
     Active Substance: HUMAN IMMUNOGLOBULIN G
     Dosage: 20 GRAM, QW
     Route: 058
     Dates: start: 202103
  3. HIZENTRA [Suspect]
     Active Substance: HUMAN IMMUNOGLOBULIN G
     Dosage: UNK
     Route: 058
     Dates: start: 20211005
  4. HIZENTRA [Suspect]
     Active Substance: HUMAN IMMUNOGLOBULIN G
     Dosage: UNK
     Route: 058
     Dates: start: 20211012

REACTIONS (7)
  - Hypersensitivity [Unknown]
  - Rash [Unknown]
  - Infusion site swelling [Unknown]
  - Infusion site pain [Unknown]
  - Infusion site pruritus [Unknown]
  - Pain [Unknown]
  - Rash [Unknown]

NARRATIVE: CASE EVENT DATE: 20211005
